FAERS Safety Report 5841820-6 (Version None)
Quarter: 2008Q3

REPORT INFORMATION
  Report Type: 
  Country: None (occurrence: None)
  Receive Date: 20080812
  Receipt Date: 20080807
  Transmission Date: 20090109
  Serious: Yes (Other)
  Sender: FDA-Public Use
  Company Number: B0470434A

PATIENT
  Age: 43 Year
  Sex: Male
  Weight: 85 kg

DRUGS (4)
  1. AVANDAMET [Suspect]
     Route: 048
  2. NOVONORM [Concomitant]
     Dosage: 3MG PER DAY
     Route: 065
  3. LASIX [Concomitant]
     Route: 065
     Dates: end: 20070507
  4. TAHOR [Concomitant]
     Dosage: 10MG PER DAY

REACTIONS (4)
  - HOT FLUSH [None]
  - OEDEMA PERIPHERAL [None]
  - TREMOR [None]
  - WEIGHT INCREASED [None]
